FAERS Safety Report 17974948 (Version 3)
Quarter: 2020Q3

REPORT INFORMATION
  Report Type: Spontaneous
  Country: FR (occurrence: FR)
  Receive Date: 20200702
  Receipt Date: 20200710
  Transmission Date: 20201103
  Serious: Yes (Hospitalization)
  Sender: FDA-Public Use
  Company Number: FR-PFIZER INC-2020252068

PATIENT
  Age: 39 Year
  Sex: Male

DRUGS (2)
  1. ALPRAZOLAM. [Suspect]
     Active Substance: ALPRAZOLAM
     Dosage: 10 DF, DAILY (10 X 0.5 MG DAILY)HIGH DOSE,TABLETS,0.5 MG EACH DAY
     Dates: start: 1992, end: 1995
  2. BROMAZEPAM [Suspect]
     Active Substance: BROMAZEPAM
     Dosage: UNK, AS NEEDED (OCCASIONALLY)HIGH DOSE
     Dates: start: 1992, end: 1995

REACTIONS (8)
  - Anxiety [Recovered/Resolved]
  - Photophobia [Recovered/Resolved]
  - Vertigo [Recovered/Resolved]
  - Headache [Recovered/Resolved]
  - Abdominal pain [Recovered/Resolved]
  - Hyperhidrosis [Recovered/Resolved]
  - Vomiting [Recovered/Resolved]
  - Drug withdrawal syndrome [Recovered/Resolved]
